FAERS Safety Report 22284524 (Version 1)
Quarter: 2023Q2

REPORT INFORMATION
  Report Type: Spontaneous
  Country: BR (occurrence: None)
  Receive Date: 20230504
  Receipt Date: 20230504
  Transmission Date: 20230722
  Serious: Yes (Other)
  Sender: FDA-Public Use
  Company Number: 2023A100072

PATIENT
  Age: 61 Year
  Sex: Female

DRUGS (6)
  1. ROSUVASTATIN [Suspect]
     Active Substance: ROSUVASTATIN
     Dosage: 20.0MG UNKNOWN
     Route: 048
  2. METOPROLOL SUCCINATE [Suspect]
     Active Substance: METOPROLOL SUCCINATE
     Indication: Arrhythmia
     Route: 048
  3. METOPROLOL SUCCINATE [Suspect]
     Active Substance: METOPROLOL SUCCINATE
     Indication: Cardiomyopathy
     Route: 048
  4. METOPROLOL TARTRATE [Suspect]
     Active Substance: METOPROLOL TARTRATE
  5. RESTITUE [Concomitant]
     Dosage: 40.0MG UNKNOWN
  6. IVABRADINE [Concomitant]
     Active Substance: IVABRADINE
     Dosage: 5.0MG UNKNOWN

REACTIONS (5)
  - Bradycardia [Unknown]
  - Arrhythmia [Unknown]
  - Drug ineffective [Unknown]
  - Medication error [Unknown]
  - Off label use [Not Recovered/Not Resolved]

NARRATIVE: CASE EVENT DATE: 20230425
